FAERS Safety Report 9255329 (Version 1)
Quarter: 2013Q2

REPORT INFORMATION
  Report Type: Spontaneous
  Country: US (occurrence: None)
  Receive Date: 20130423
  Receipt Date: 20130423
  Transmission Date: 20140414
  Serious: Yes (Hospitalization)
  Sender: FDA-Public Use
  Company Number: None

PATIENT
  Age: 66 Year
  Sex: Male
  Weight: 96.1 kg

DRUGS (1)
  1. GABAPENTIN [Suspect]
     Indication: DIABETIC NEUROPATHY
     Route: 048
     Dates: start: 20130205, end: 20130305

REACTIONS (13)
  - Toxicity to various agents [None]
  - Cognitive disorder [None]
  - Tremor [None]
  - Myoclonus [None]
  - Delirium [None]
  - Confusional state [None]
  - Hypotension [None]
  - Photophobia [None]
  - Feeling abnormal [None]
  - Renal failure acute [None]
  - Mental status changes [None]
  - Aphasia [None]
  - Incorrect dose administered [None]
